FAERS Safety Report 7672437-9 (Version None)
Quarter: 2011Q3

REPORT INFORMATION
  Report Type: 
  Country: None (occurrence: None)
  Receive Date: 20110809
  Receipt Date: 20110804
  Transmission Date: 20111222
  Serious: Yes (Hospitalization, Disabling, Other)
  Sender: FDA-Public Use
  Company Number: US-MERCK-1003USA03103

PATIENT
  Age: 53 Year
  Sex: Female
  Weight: 68 kg

DRUGS (9)
  1. LITHIUM CARBONATE [Concomitant]
     Indication: BIPOLAR DISORDER
     Route: 065
     Dates: start: 19950101, end: 20100101
  2. ZOLOFT [Concomitant]
     Indication: ANXIETY
     Route: 065
     Dates: start: 19900101
  3. DEPAKOTE [Concomitant]
     Route: 048
     Dates: start: 20020101, end: 20051206
  4. LEVOXYL [Concomitant]
     Route: 048
     Dates: start: 20020101
  5. FOSAMAX [Suspect]
     Indication: OSTEOPOROSIS
     Route: 048
     Dates: start: 20040101, end: 20080101
  6. ATIVAN [Concomitant]
     Indication: ANXIETY
     Route: 065
     Dates: start: 19980101
  7. FOSAMAX [Suspect]
     Route: 048
     Dates: start: 20040906, end: 20090101
  8. SEROQUEL [Concomitant]
     Route: 048
     Dates: start: 20020101
  9. ZOLOFT [Concomitant]
     Indication: DEPRESSION
     Route: 065
     Dates: start: 19900101

REACTIONS (43)
  - TREATMENT NONCOMPLIANCE [None]
  - DELUSION [None]
  - BLOOD CHOLESTEROL INCREASED [None]
  - INSOMNIA [None]
  - BURSITIS [None]
  - DEEP VEIN THROMBOSIS [None]
  - WRIST FRACTURE [None]
  - LACUNAR INFARCTION [None]
  - BIPOLAR DISORDER [None]
  - BORDERLINE PERSONALITY DISORDER [None]
  - CEREBROVASCULAR ACCIDENT [None]
  - MITRAL VALVE PROLAPSE [None]
  - HYPOTHYROIDISM [None]
  - TRANSIENT ISCHAEMIC ATTACK [None]
  - LEUKOCYTOSIS [None]
  - ANGIOPATHY [None]
  - OEDEMA PERIPHERAL [None]
  - PROTEINURIA [None]
  - PARKINSONISM [None]
  - GASTROOESOPHAGEAL REFLUX DISEASE [None]
  - ADVERSE EVENT [None]
  - PARADOXICAL EMBOLISM [None]
  - TOXICITY TO VARIOUS AGENTS [None]
  - MUSCULOSKELETAL DISORDER [None]
  - IRON DEFICIENCY ANAEMIA [None]
  - IMPAIRED HEALING [None]
  - PAIN [None]
  - TONSILLAR DISORDER [None]
  - HYPERLIPIDAEMIA [None]
  - TYPE 2 DIABETES MELLITUS [None]
  - FEMUR FRACTURE [None]
  - HALLUCINATION, VISUAL [None]
  - SINUS TACHYCARDIA [None]
  - ISCHAEMIC CEREBRAL INFARCTION [None]
  - HYPERTENSION [None]
  - TREMOR [None]
  - GASTRITIS [None]
  - URINARY TRACT INFECTION [None]
  - OSTEOPENIA [None]
  - DYSPHONIA [None]
  - VIITH NERVE PARALYSIS [None]
  - ATRIAL SEPTAL DEFECT [None]
  - FIBROCYSTIC BREAST DISEASE [None]
